FAERS Safety Report 6193104-7 (Version None)
Quarter: 2009Q2

REPORT INFORMATION
  Report Type: 
  Country: None (occurrence: None)
  Receive Date: 20090514
  Receipt Date: 20090514
  Transmission Date: 20091009
  Serious: Yes (Other)
  Sender: FDA-Public Use
  Company Number: None

PATIENT
  Age: 5 Year
  Sex: Female
  Weight: 19.0511 kg

DRUGS (2)
  1. SINGULAIR [Suspect]
     Indication: ASTHMA
     Dosage: 1 TABLET ONCE DAILY PO
     Route: 048
     Dates: start: 20090325, end: 20090513
  2. SINGULAIR [Suspect]
     Indication: MULTIPLE ALLERGIES
     Dosage: 1 TABLET ONCE DAILY PO
     Route: 048
     Dates: start: 20090325, end: 20090513

REACTIONS (4)
  - HYPOAESTHESIA [None]
  - MYALGIA [None]
  - SLEEP TERROR [None]
  - TREMOR [None]
